FAERS Safety Report 5399159-1 (Version None)
Quarter: 2007Q3

REPORT INFORMATION
  Report Type: 
  Country: None (occurrence: None)
  Receive Date: 20070727
  Receipt Date: 20070716
  Transmission Date: 20080115
  Serious: Yes (Hospitalization, Other)
  Sender: FDA-Public Use
  Company Number: US-ELI_LILLY_AND_COMPANY-US200707003946

PATIENT
  Age: 60 Year
  Sex: Female

DRUGS (4)
  1. HUMALOG MIX 75/25 [Suspect]
     Indication: DIABETES MELLITUS
     Dosage: 40 U, DAILY (1/D)
  2. HUMALOG MIX 75/25 [Suspect]
     Dosage: UNK, AS NEEDED
  3. ARIMIDEX [Concomitant]
     Indication: BREAST CANCER
  4. ANTIBIOTICS [Concomitant]
     Dates: start: 20070701, end: 20070701

REACTIONS (9)
  - ASTHENIA [None]
  - BLOOD GLUCOSE DECREASED [None]
  - BREAST CANCER [None]
  - BURNING SENSATION [None]
  - FALL [None]
  - FOOT FRACTURE [None]
  - INFLUENZA [None]
  - KNEE ARTHROPLASTY [None]
  - SOMNOLENCE [None]
